FAERS Safety Report 8373713-7 (Version None)
Quarter: 2012Q2

REPORT INFORMATION
  Report Type: 
  Country: None (occurrence: None)
  Receive Date: 20120521
  Receipt Date: 20120511
  Transmission Date: 20120825
  Serious: Yes (Disabling)
  Sender: FDA-Public Use
  Company Number: JP-ASTRAZENECA-2012SE20681

PATIENT
  Age: 49 Year
  Sex: Female
  Weight: 55 kg

DRUGS (3)
  1. ROPIVACAINE HYDROCHLORIDE [Suspect]
     Indication: EPIDURAL ANAESTHESIA
     Dosage: 5 ML/H
     Route: 008
     Dates: start: 20120316, end: 20120316
  2. XYLOCAINE [Concomitant]
     Dosage: 70 MG/ 09:27: 3 ML AS TEST DOSE 10:00: 4 ML AS BOLUS
     Route: 040
     Dates: start: 20120316, end: 20120316
  3. ROPIVACAINE HYDROCHLORIDE [Suspect]
     Dosage: 3 ML/H
     Route: 008
     Dates: start: 20120317, end: 20120317

REACTIONS (1)
  - DIPLEGIA [None]
